FAERS Safety Report 7940922-8 (Version None)
Quarter: 2011Q4

REPORT INFORMATION
  Report Type: 
  Country: None (occurrence: None)
  Receive Date: 20111128
  Receipt Date: 20111121
  Transmission Date: 20120403
  Serious: Yes (Death)
  Sender: FDA-Public Use
  Company Number: RO-B.I. PHARMACEUTICALS,INC./RIDGEFIELD-2011-AP-00636AP

PATIENT
  Age: 65 Year
  Sex: Female
  Weight: 60 kg

DRUGS (8)
  1. PRADAXA [Suspect]
     Indication: CEREBROVASCULAR ACCIDENT PROPHYLAXIS
     Dosage: 300 MG
     Route: 048
     Dates: start: 20111104, end: 20111108
  2. ACENOCUMAROLUM [Suspect]
     Indication: ATRIAL FIBRILLATION
     Dosage: 2 MG
     Dates: start: 20111108, end: 20111109
  3. PRADAXA [Suspect]
     Indication: ATRIAL FIBRILLATION
  4. DIGOXIN [Concomitant]
     Dosage: 0.25 MG
     Route: 048
     Dates: start: 20111025, end: 20111109
  5. INDAPAMIDUM [Concomitant]
     Dosage: 1.5 MG
     Route: 048
     Dates: start: 20111025, end: 20111109
  6. RAMIPRIL [Concomitant]
     Dosage: 10 MG
     Route: 048
     Dates: start: 20111025, end: 20111109
  7. ENOXAPARIN SODIUM [Concomitant]
     Indication: ATRIAL FIBRILLATION
  8. CARVEDILOL [Concomitant]
     Dosage: 6.25 MG
     Route: 048
     Dates: start: 20111025, end: 20111109

REACTIONS (5)
  - UPPER GASTROINTESTINAL HAEMORRHAGE [None]
  - ATRIAL FIBRILLATION [None]
  - HAEMATURIA [None]
  - PULMONARY EMBOLISM [None]
  - CARDIO-RESPIRATORY ARREST [None]
